FAERS Safety Report 23632605 (Version 1)
Quarter: 2024Q1

REPORT INFORMATION
  Report Type: Report from Study
  Country: PH (occurrence: PH)
  Receive Date: 20240314
  Receipt Date: 20240314
  Transmission Date: 20240410
  Serious: Yes (Hospitalization)
  Sender: FDA-Public Use
  Company Number: PH-OTSUKA-2024_006341

PATIENT
  Sex: Female

DRUGS (1)
  1. TOLVAPTAN [Suspect]
     Active Substance: TOLVAPTAN
     Indication: Blood electrolytes decreased
     Dosage: 1 DF, QD (AT NIGHT)
     Route: 048

REACTIONS (3)
  - Systemic lupus erythematosus [Unknown]
  - Blood electrolytes decreased [Unknown]
  - Product use in unapproved indication [Unknown]
